FAERS Safety Report 10349557 (Version 2)
Quarter: 2014Q3

REPORT INFORMATION
  Report Type: Spontaneous
  Country: US (occurrence: US)
  Receive Date: 20140730
  Receipt Date: 20140812
  Transmission Date: 20150326
  Serious: Yes (Hospitalization, Other)
  Sender: FDA-Public Use
  Company Number: US-009507513-1407USA013454

PATIENT
  Sex: Female

DRUGS (1)
  1. FOSAMAX [Suspect]
     Active Substance: ALENDRONATE SODIUM
     Indication: OSTEOPOROSIS
     Dosage: UNKNOWN
     Route: 048
     Dates: end: 2012

REACTIONS (4)
  - Femur fracture [Unknown]
  - Bone operation [Not Recovered/Not Resolved]
  - Surgical failure [Unknown]
  - Bone operation [Unknown]

NARRATIVE: CASE EVENT DATE: 2013
